FAERS Safety Report 11177649 (Version 3)
Quarter: 2015Q3

REPORT INFORMATION
  Report Type: Spontaneous
  Country: US (occurrence: US)
  Receive Date: 20150610
  Receipt Date: 20150818
  Transmission Date: 20151125
  Serious: Yes (Hospitalization)
  Sender: FDA-Public Use
  Company Number: US-PFIZER INC-2015190216

PATIENT
  Age: 66 Year
  Sex: Female
  Weight: 90 kg

DRUGS (3)
  1. OMEPRAZOLE. [Concomitant]
     Active Substance: OMEPRAZOLE
     Dosage: 20 MG, 2X/DAY
  2. EXEMESTANE. [Suspect]
     Active Substance: EXEMESTANE
     Indication: BREAST CANCER FEMALE
     Dosage: 25 MG, 1X/DAY
     Route: 048
     Dates: start: 20150520, end: 20150605
  3. TAMOXIFEN CITRATE. [Suspect]
     Active Substance: TAMOXIFEN CITRATE
     Indication: BREAST CANCER FEMALE
     Dosage: 20 MG, 1X/DAY
     Route: 048
     Dates: start: 20150423, end: 20150511

REACTIONS (7)
  - Abdominal tenderness [Recovered/Resolved]
  - Constipation [Recovered/Resolved]
  - Vaginal discharge [Not Recovered/Not Resolved]
  - Malaise [Recovered/Resolved]
  - Uterine pain [Not Recovered/Not Resolved]
  - Uterine spasm [Recovered/Resolved]
  - Endometrial thickening [Recovered/Resolved]

NARRATIVE: CASE EVENT DATE: 201505
